FAERS Safety Report 4680697-1 (Version None)
Quarter: 2005Q2

REPORT INFORMATION
  Report Type: 
  Country: None (occurrence: None)
  Receive Date: 20050603
  Receipt Date: 19990728
  Transmission Date: 20051028
  Serious: Yes (Other)
  Sender: FDA-Public Use
  Company Number: 1999AU14180

PATIENT
  Age: 13 Year
  Sex: Male
  Weight: 44 kg

DRUGS (3)
  1. ROPIVACAINE [Suspect]
     Dosage: DOSE: 20 MG
     Route: 008
  2. BACLOFEN [Suspect]
  3. IMIPRAMINE [Suspect]

REACTIONS (3)
  - BUNDLE BRANCH BLOCK [None]
  - GRAND MAL CONVULSION [None]
  - TACHYCARDIA [None]
